FAERS Safety Report 23304705 (Version 1)
Quarter: 2023Q4

REPORT INFORMATION
  Report Type: Spontaneous
  Country: US (occurrence: US)
  Receive Date: 20231218
  Receipt Date: 20231218
  Transmission Date: 20240110
  Serious: Yes (Other)
  Sender: FDA-Public Use
  Company Number: US-JNJFOC-20231222456

PATIENT
  Age: 73 Year

DRUGS (11)
  1. IMBRUVICA [Suspect]
     Active Substance: IBRUTINIB
     Indication: Chronic lymphocytic leukaemia
     Dosage: ON 28-DAY CYCLES
     Route: 048
  2. ROPINIROLE [Concomitant]
     Active Substance: ROPINIROLE
     Indication: Product used for unknown indication
     Route: 065
  3. LISINOPRIL [Concomitant]
     Active Substance: LISINOPRIL
     Indication: Product used for unknown indication
     Route: 065
  4. ENTACAPONE [Concomitant]
     Active Substance: ENTACAPONE
     Indication: Product used for unknown indication
     Route: 065
  5. ROSUVASTATIN [Concomitant]
     Active Substance: ROSUVASTATIN
     Indication: Product used for unknown indication
     Route: 065
  6. DARIFENACIN [Concomitant]
     Active Substance: DARIFENACIN
     Indication: Product used for unknown indication
     Route: 065
  7. CARBIDOPA [Concomitant]
     Active Substance: CARBIDOPA
     Indication: Product used for unknown indication
     Route: 065
  8. FLUDARABINE [Suspect]
     Active Substance: FLUDARABINE PHOSPHATE
     Indication: Chronic lymphocytic leukaemia
     Dosage: DAYS 1-5 OF CYCLES THREE AND FOUR
     Route: 042
  9. LEVODOPA [Concomitant]
     Active Substance: LEVODOPA
     Indication: Product used for unknown indication
     Route: 065
  10. LANSOPRAZOLE [Concomitant]
     Active Substance: LANSOPRAZOLE
     Indication: Product used for unknown indication
     Route: 065
  11. LEVOTHYROXINE [Concomitant]
     Active Substance: LEVOTHYROXINE
     Indication: Product used for unknown indication
     Route: 065

REACTIONS (1)
  - Sinus arrest [Unknown]
